FAERS Safety Report 23153681 (Version 3)
Quarter: 2023Q4

REPORT INFORMATION
  Report Type: Report from Study
  Country: CN (occurrence: CN)
  Receive Date: 20231107
  Receipt Date: 20231205
  Transmission Date: 20240109
  Serious: Yes (Other)
  Sender: FDA-Public Use
  Company Number: CN-AMGEN-CHNNI2023196434

PATIENT
  Sex: Female
  Weight: 57 kg

DRUGS (7)
  1. DENOSUMAB [Suspect]
     Active Substance: DENOSUMAB
     Indication: Osteoporosis postmenopausal
     Dosage: 60 MILLIGRAM
     Route: 058
     Dates: start: 20230808
  2. AMLODIPINE BESYLATE [Concomitant]
     Active Substance: AMLODIPINE BESYLATE
     Dosage: 1 UNK
     Route: 048
     Dates: start: 2021
  3. COMPOUND BETAMETHASONE [Concomitant]
     Dosage: 1 MILLILITER
     Route: 061
     Dates: start: 20230804, end: 20230804
  4. OMEPRAZOLE SODIUM [Concomitant]
     Active Substance: OMEPRAZOLE SODIUM
     Dosage: 60 MILLIGRAM
     Route: 042
     Dates: start: 20230804, end: 20230807
  5. PARECOXIB SODIUM [Concomitant]
     Active Substance: PARECOXIB SODIUM
     Dosage: 40 MILLIGRAM
     Route: 042
     Dates: start: 20230804, end: 20230807
  6. FLURBIPROFEN [Concomitant]
     Active Substance: FLURBIPROFEN
     Dosage: 1 UNK
     Route: 061
     Dates: start: 20230805
  7. ACETAMINOPHEN\OXYCODONE HYDROCHLORIDE [Concomitant]
     Active Substance: ACETAMINOPHEN\OXYCODONE HYDROCHLORIDE
     Dosage: 1 UNK
     Route: 048
     Dates: start: 20230807, end: 20230808

REACTIONS (1)
  - Hypokalaemia [Unknown]

NARRATIVE: CASE EVENT DATE: 20230808
